APPROVED DRUG PRODUCT: OXYBUTYNIN CHLORIDE
Active Ingredient: OXYBUTYNIN CHLORIDE
Strength: 2.5MG
Dosage Form/Route: TABLET;ORAL
Application: A209025 | Product #002
Applicant: RISING PHARMA HOLDINGS INC
Approved: Feb 7, 2023 | RLD: No | RS: Yes | Type: RX